FAERS Safety Report 8021955-2 (Version None)
Quarter: 2012Q1

REPORT INFORMATION
  Report Type: 
  Country: None (occurrence: None)
  Receive Date: 20120104
  Receipt Date: 20111229
  Transmission Date: 20120608
  Serious: Yes (Other)
  Sender: FDA-Public Use
  Company Number: PHHY2011ES113540

PATIENT
  Age: 79 Year
  Sex: Male

DRUGS (1)
  1. GEMFIBROZIL [Suspect]
     Indication: DYSLIPIDAEMIA
     Dosage: 1200 MG, QD
     Route: 048
     Dates: start: 20110607, end: 20110623

REACTIONS (2)
  - HEADACHE [None]
  - ASTHENIA [None]
